FAERS Safety Report 9737501 (Version 2)
Quarter: 2013Q4

REPORT INFORMATION
  Report Type: Report from Study
  Country: DE (occurrence: DE)
  Receive Date: 20131206
  Receipt Date: 20131206
  Transmission Date: 20140711
  Serious: Yes (Hospitalization)
  Sender: FDA-Public Use
  Company Number: DE-B.I. PHARMACEUTICALS,INC./RIDGEFIELD-2013-BI-00967BI

PATIENT
  Age: 87 Year
  Sex: Female
  Weight: 50 kg

DRUGS (4)
  1. BIBW 2992 [Suspect]
     Indication: BREAST CANCER METASTATIC
     Dosage: 40 MG
     Route: 048
     Dates: start: 20121130, end: 20130114
  2. MONO EMBOLEX [Concomitant]
     Indication: ATRIAL FIBRILLATION
     Dosage: 8000 U
     Route: 058
     Dates: start: 20121221, end: 20121221
  3. ZOLEDRONAT [Concomitant]
     Indication: METASTASES TO BONE
     Dosage: 2.2857 MG
     Route: 042
     Dates: start: 20130107, end: 20130107
  4. FLUCONAZOL [Concomitant]
     Indication: CANDIDA INFECTION
     Dosage: 200 MG
     Route: 048
     Dates: end: 20130107

REACTIONS (2)
  - Fatigue [Recovered/Resolved]
  - Asthenia [Recovered/Resolved]
